FAERS Safety Report 7298073-4 (Version None)
Quarter: 2011Q1

REPORT INFORMATION
  Report Type: 
  Country: None (occurrence: None)
  Receive Date: 20110217
  Receipt Date: 20110211
  Transmission Date: 20110831
  Serious: Yes (Death, Other)
  Sender: FDA-Public Use
  Company Number: PHEH2009US02004

PATIENT
  Sex: Female

DRUGS (1)
  1. ZOMETA [Suspect]
     Indication: NEOPLASM MALIGNANT

REACTIONS (21)
  - INTERVERTEBRAL DISC DEGENERATION [None]
  - DEEP VEIN THROMBOSIS [None]
  - DISCOMFORT [None]
  - ENDOMETRIAL HYPERTROPHY [None]
  - METASTASES TO LIVER [None]
  - LYMPHADENOPATHY [None]
  - BONE LESION [None]
  - PAIN IN JAW [None]
  - ANXIETY [None]
  - OSTEONECROSIS OF JAW [None]
  - LYMPHADENOPATHY MEDIASTINAL [None]
  - DYSPHAGIA [None]
  - METASTASES TO BONE [None]
  - HEPATIC LESION [None]
  - DEFORMITY [None]
  - LUNG HYPERINFLATION [None]
  - PLEURAL EFFUSION [None]
  - BRAIN MASS [None]
  - METASTASES TO LUNG [None]
  - DEATH [None]
  - ATELECTASIS [None]
